FAERS Safety Report 5501644-6 (Version None)
Quarter: 2007Q4

REPORT INFORMATION
  Report Type: 
  Country: None (occurrence: None)
  Receive Date: 20071026
  Receipt Date: 20071012
  Transmission Date: 20080405
  Serious: Yes (Other)
  Sender: FDA-Public Use
  Company Number: 2007S1010432

PATIENT
  Age: 50 Year
  Sex: Male

DRUGS (2)
  1. TERBINAFINE HCL [Suspect]
     Indication: ONYCHOMYCOSIS
     Dosage: 250 MG ORAL
     Route: 048
     Dates: start: 20070803, end: 20070919
  2. MERACRINE (MEPACRINE) [Concomitant]

REACTIONS (4)
  - BLISTER [None]
  - CONDITION AGGRAVATED [None]
  - CUTANEOUS LUPUS ERYTHEMATOSUS [None]
  - RASH [None]
